FAERS Safety Report 9551045 (Version 1)
Quarter: 2013Q3

REPORT INFORMATION
  Report Type: Report from Study
  Country: US (occurrence: US)
  Receive Date: 20130925
  Receipt Date: 20130925
  Transmission Date: 20140515
  Serious: Yes (Hospitalization, Other)
  Sender: FDA-Public Use
  Company Number: US-ABBVIE-13P-163-1149005-00

PATIENT
  Age: 42 Year
  Sex: Female
  Weight: 72.64 kg

DRUGS (1)
  1. HUMIRA [Suspect]
     Indication: PSORIATIC ARTHROPATHY
     Route: 058
     Dates: start: 201205, end: 201212

REACTIONS (9)
  - Intestinal ulcer perforation [Recovered/Resolved]
  - Abdominal pain [Recovered/Resolved]
  - Abdominal distension [Recovered/Resolved]
  - Peritonitis [Recovered/Resolved]
  - Intestinal obstruction [Recovered/Resolved]
  - Adhesion [Recovered/Resolved]
  - Impaired healing [Unknown]
  - Colitis [Recovered/Resolved]
  - Gastric ulcer perforation [Recovered/Resolved]
